FAERS Safety Report 6499871-7 (Version None)
Quarter: 2009Q4

REPORT INFORMATION
  Report Type: 
  Country: None (occurrence: None)
  Receive Date: 20091214
  Receipt Date: 20091214
  Transmission Date: 20100525
  Serious: Yes (Death)
  Sender: FDA-Public Use
  Company Number: None

PATIENT
  Sex: Male
  Weight: 84 kg

DRUGS (3)
  1. CAPECITABINE [Suspect]
     Indication: BILE DUCT CANCER
     Dosage: D1 + D15 ORAL
     Route: 048
     Dates: start: 20080613, end: 20080710
  2. OXALIPLATIN [Suspect]
     Dosage: D1 + D15 IV
     Route: 042
  3. SORAFENIB [Suspect]
     Dosage: DAILY 28 D ORAL
     Route: 048

REACTIONS (4)
  - HYPOTENSION [None]
  - HYPOXIA [None]
  - OEDEMA PERIPHERAL [None]
  - PNEUMONIA [None]
